FAERS Safety Report 9497306 (Version 8)
Quarter: 2014Q3

REPORT INFORMATION
  Report Type: Report from Study
  Country: CA (occurrence: CA)
  Receive Date: 20130904
  Receipt Date: 20140714
  Transmission Date: 20150326
  Serious: Yes (Hospitalization, Other)
  Sender: FDA-Public Use
  Company Number: CA-ROCHE-1256445

PATIENT
  Age: 48 Year
  Sex: Male

DRUGS (17)
  1. RITUXAN [Suspect]
     Active Substance: RITUXIMAB
     Indication: PEMPHIGOID
     Dosage: FREQUENCY DAY 1 AND DAY 15
     Route: 042
     Dates: start: 20120411
  2. VITAMIN E [Concomitant]
     Active Substance: .ALPHA.-TOCOPHEROL
  3. TYLENOL [Concomitant]
     Active Substance: ACETAMINOPHEN
     Indication: PREMEDICATION
     Route: 048
     Dates: start: 20120426
  4. METFORMIN [Concomitant]
     Active Substance: METFORMIN HYDROCHLORIDE
  5. SOLU-MEDROL [Concomitant]
     Active Substance: METHYLPREDNISOLONE SODIUM SUCCINATE
     Indication: PREMEDICATION
     Route: 042
     Dates: start: 20120426
  6. CYCLOSPORINE. [Concomitant]
     Active Substance: CYCLOSPORINE
  7. RITUXAN [Suspect]
     Active Substance: RITUXIMAB
     Route: 042
     Dates: start: 20130814
  8. VITAMIN C [Concomitant]
     Active Substance: ASCORBIC ACID
  9. INSULIN [Concomitant]
     Active Substance: INSULIN NOS
  10. BENADRYL [Concomitant]
     Active Substance: DIPHENHYDRAMINE HYDROCHLORIDE
     Indication: PREMEDICATION
     Route: 048
     Dates: start: 20120426
  11. GLYBURIDE. [Concomitant]
     Active Substance: GLYBURIDE
  12. ZANTAC [Concomitant]
     Active Substance: RANITIDINE HYDROCHLORIDE
  13. INSULIN [Concomitant]
     Active Substance: INSULIN NOS
  14. PREDNISONE. [Concomitant]
     Active Substance: PREDNISONE
  15. RITUXAN [Suspect]
     Active Substance: RITUXIMAB
     Dosage: DAY 1 AND DAY 15
     Route: 042
     Dates: start: 20130904
  16. CELLCEPT [Suspect]
     Active Substance: MYCOPHENOLATE MOFETIL\MYCOPHENOLATE MOFETIL HYDROCHLORIDE
     Indication: PEMPHIGOID
     Route: 065
  17. DIAZEPAN [Concomitant]

REACTIONS (14)
  - Dermatitis bullous [Unknown]
  - Malaise [Not Recovered/Not Resolved]
  - Dermatitis bullous [Unknown]
  - Pruritus [Unknown]
  - Pain [Not Recovered/Not Resolved]
  - Dermatitis bullous [Not Recovered/Not Resolved]
  - Abdominal distension [Unknown]
  - Infection [Unknown]
  - Off label use [Unknown]
  - Blood glucose increased [Unknown]
  - Anxiety [Unknown]
  - Poor dental condition [Unknown]
  - Blister infected [Unknown]
  - Restlessness [Unknown]

NARRATIVE: CASE EVENT DATE: 201306
